FAERS Safety Report 10082583 (Version 1)
Quarter: 2014Q2

REPORT INFORMATION
  Report Type: Report from Study
  Country: CA (occurrence: CA)
  Receive Date: 20140416
  Receipt Date: 20140416
  Transmission Date: 20141212
  Serious: Yes (Hospitalization)
  Sender: FDA-Public Use
  Company Number: CA-GILEAD-2014-0099592

PATIENT
  Sex: Female

DRUGS (1)
  1. AZTREONAM LYSINE [Suspect]
     Indication: CYSTIC FIBROSIS
     Dosage: UNK
     Route: 065
     Dates: start: 201305

REACTIONS (1)
  - Infection [Unknown]
